FAERS Safety Report 10218369 (Version 1)
Quarter: 2014Q2

REPORT INFORMATION
  Report Type: Spontaneous
  Country: US (occurrence: US)
  Receive Date: 20140605
  Receipt Date: 20140605
  Transmission Date: 20141212
  Serious: No
  Sender: FDA-Public Use
  Company Number: US-TEVA-486489USA

PATIENT
  Age: 23 Year
  Sex: Female
  Weight: 63.56 kg

DRUGS (4)
  1. PLAN B ONE-STEP [Suspect]
     Indication: POST COITAL CONTRACEPTION
     Dosage: 1.5 MILLIGRAM DAILY;
     Route: 048
     Dates: start: 20140523, end: 20140523
  2. CELEXA [Concomitant]
     Indication: ANXIETY
     Dosage: 40 MILLIGRAM DAILY;
  3. KLONOPIN [Concomitant]
     Indication: ANXIETY
     Route: 048
  4. XANAX [Concomitant]
     Indication: ANXIETY
     Dosage: ONCE
     Route: 048

REACTIONS (1)
  - Menstruation irregular [Not Recovered/Not Resolved]
